FAERS Safety Report 6064663-X (Version None)
Quarter: 2009Q1

REPORT INFORMATION
  Report Type: 
  Country: None (occurrence: None)
  Receive Date: 20090204
  Receipt Date: 20080326
  Transmission Date: 20090719
  Serious: No
  Sender: FDA-Public Use
  Company Number: A0717606A

PATIENT
  Age: 78 Year
  Sex: Female

DRUGS (2)
  1. ARIXTRA [Suspect]
     Route: 058
  2. ASPIRIN [Concomitant]

REACTIONS (3)
  - FALL [None]
  - HAEMATOMA [None]
  - HEAD INJURY [None]
